FAERS Safety Report 5981051-2 (Version None)
Quarter: 2008Q4

REPORT INFORMATION
  Report Type: 
  Country: None (occurrence: None)
  Receive Date: 20081205
  Receipt Date: 20081020
  Transmission Date: 20090506
  Serious: No
  Sender: FDA-Public Use
  Company Number: A0752663A

PATIENT
  Sex: Female

DRUGS (2)
  1. COMMIT [Suspect]
     Dates: start: 20081017, end: 20081017
  2. NEXIUM [Concomitant]

REACTIONS (3)
  - ABDOMINAL DISCOMFORT [None]
  - DYSPHAGIA [None]
  - PHARYNGEAL OEDEMA [None]
